FAERS Safety Report 22246263 (Version 2)
Quarter: 2023Q2

REPORT INFORMATION
  Report Type: Report from Study
  Country: CA (occurrence: CA)
  Receive Date: 20230424
  Receipt Date: 20230502
  Transmission Date: 20230721
  Serious: Yes (Hospitalization, Other)
  Sender: FDA-Public Use
  Company Number: CA-FERRING-2023FE01818

PATIENT

DRUGS (6)
  1. DEGARELIX [Suspect]
     Active Substance: DEGARELIX
     Indication: Hormone-dependent prostate cancer
     Dosage: 80 MG, MONTHLY
     Route: 058
     Dates: start: 20220414
  2. DEGARELIX [Suspect]
     Active Substance: DEGARELIX
     Dosage: 240 MG, ONCE/SINGLE
     Route: 058
     Dates: start: 20220304, end: 20220304
  3. ATORVASTATIN [Suspect]
     Active Substance: ATORVASTATIN
     Indication: Product used for unknown indication
     Route: 065
  4. BISOPROLOL [Suspect]
     Active Substance: BISOPROLOL
     Indication: Product used for unknown indication
     Route: 065
  5. IRBESARTAN [Suspect]
     Active Substance: IRBESARTAN
     Indication: Product used for unknown indication
     Route: 065
  6. ASPIRIN [Suspect]
     Active Substance: ASPIRIN
     Indication: Product used for unknown indication
     Route: 065

REACTIONS (9)
  - Cerebrovascular accident [Recovering/Resolving]
  - Haematochezia [Not Recovered/Not Resolved]
  - Haemorrhoids [Recovering/Resolving]
  - Ataxia [Unknown]
  - Balance disorder [Unknown]
  - Coordination abnormal [Unknown]
  - Diarrhoea [Recovering/Resolving]
  - Constipation [Recovering/Resolving]
  - Product use issue [Recovered/Resolved]

NARRATIVE: CASE EVENT DATE: 20230101
